FAERS Safety Report 8500449-1 (Version None)
Quarter: 2012Q3

REPORT INFORMATION
  Report Type: 
  Country: None (occurrence: None)
  Receive Date: 20120710
  Receipt Date: 20120703
  Transmission Date: 20120928
  Serious: Yes (Hospitalization)
  Sender: FDA-Public Use
  Company Number: JP-VIIV HEALTHCARE LIMITED-B0806577A

PATIENT
  Sex: Male

DRUGS (30)
  1. ISENTRESS [Suspect]
     Indication: HIV INFECTION
     Dosage: 2IUAX PER DAY
     Route: 048
     Dates: start: 20120511
  2. ISOTONIC SODIUM CHLORIDE SOLUTION [Concomitant]
     Route: 065
  3. VITAMEDIN [Concomitant]
     Route: 042
  4. SULFAMETHOXAZOLE AND TRIMETHOPRIM [Concomitant]
     Dosage: 1IUAX PER DAY
     Route: 048
  5. MARAVIROC [Suspect]
     Indication: HIV INFECTION
     Dosage: 300MG PER DAY
     Route: 048
     Dates: start: 20120528
  6. ONCOVIN [Suspect]
     Indication: PLASMABLASTIC LYMPHOMA
     Dosage: 1.5MG PER DAY
     Route: 042
     Dates: start: 20120314, end: 20120314
  7. NIZATIDINE [Concomitant]
     Dosage: 300MG PER DAY
     Route: 048
  8. CEFAZOLIN SODIUM [Concomitant]
     Dosage: 18MG PER DAY
     Route: 048
  9. ONCOVIN [Suspect]
     Dosage: 1.5MG PER DAY
     Route: 042
     Dates: start: 20120321, end: 20120321
  10. FLUCONAZOLE [Concomitant]
     Dosage: 200MG PER DAY
     Route: 048
  11. PROSTARMON.F [Concomitant]
     Dosage: 1ML PER DAY
     Route: 042
  12. ZITHROMAX [Concomitant]
     Route: 048
  13. FOSCAVIR [Concomitant]
     Dosage: 6000MG PER DAY
     Route: 042
  14. URSO 250 [Concomitant]
     Dosage: 300MG PER DAY
     Route: 048
  15. ELECTROLYTES + GLUCOSE [Concomitant]
     Dosage: 1000ML PER DAY
     Route: 042
  16. CIPROFLOXACIN [Concomitant]
     Dosage: 150ML PER DAY
     Route: 042
  17. EPZICOM [Suspect]
     Indication: HIV INFECTION
     Dosage: 1IUAX PER DAY
     Route: 048
     Dates: start: 20120511
  18. CYCLOPHOSPHAMIDE [Suspect]
     Dosage: 300MG PER DAY
     Route: 042
     Dates: start: 20120315, end: 20120318
  19. DOXORUBICIN HYDROCHLORIDE [Suspect]
     Indication: PLASMABLASTIC LYMPHOMA
     Dosage: 60MG PER DAY
     Route: 042
     Dates: start: 20120314, end: 20120314
  20. METHOTREXATE [Suspect]
     Indication: PLASMABLASTIC LYMPHOMA
     Dosage: 2170MG PER DAY
     Route: 042
     Dates: start: 20120323, end: 20120323
  21. ALENDRONATE SODIUM [Concomitant]
     Route: 048
  22. PANTOL [Concomitant]
     Dosage: 5ML PER DAY
     Route: 042
  23. ISOTONIC SODIUM CHLORIDE SOLUTION [Concomitant]
     Dosage: 250ML PER DAY
     Route: 042
  24. TPN ELECTROLYTES IN PLASTIC CONTAINER [Concomitant]
     Dosage: 500ML PER DAY
     Route: 042
  25. HYDROCORTONE [Concomitant]
     Dosage: 2ML PER DAY
     Route: 042
  26. CYCLOPHOSPHAMIDE [Suspect]
     Indication: PLASMABLASTIC LYMPHOMA
     Dosage: 1200MG PER DAY
     Route: 042
     Dates: start: 20120314, end: 20120314
  27. KAYTWO N [Concomitant]
     Dosage: 4ML PER DAY
     Route: 042
  28. MEROPENEM [Concomitant]
     Dosage: 300ML PER DAY
     Route: 042
  29. AMIKACIN SULFATE [Concomitant]
     Dosage: 200MG PER DAY
     Route: 042
  30. NEUTROGIN [Concomitant]
     Dosage: 1ML PER DAY
     Route: 042

REACTIONS (1)
  - PANCYTOPENIA [None]
